FAERS Safety Report 4843020-5 (Version None)
Quarter: 2005Q4

REPORT INFORMATION
  Report Type: 
  Country: None (occurrence: None)
  Receive Date: 20051201
  Receipt Date: 20051121
  Transmission Date: 20060501
  Serious: Yes (Death, Hospitalization, Disabling)
  Sender: FDA-Public Use
  Company Number: US-SANOFI-SYNTHELABO-A03200503839

PATIENT
  Sex: Male
  Weight: 75.73 kg

DRUGS (2)
  1. PLAVIX [Suspect]
     Indication: CEREBROVASCULAR ACCIDENT
     Route: 048
     Dates: start: 20010101, end: 20051001
  2. NORVASC [Concomitant]
     Route: 048

REACTIONS (11)
  - AMNESIA [None]
  - ANOREXIA [None]
  - APHASIA [None]
  - CEREBRAL CYST [None]
  - CEREBROVASCULAR ACCIDENT [None]
  - CONFUSIONAL STATE [None]
  - INSOMNIA [None]
  - PNEUMONIA [None]
  - SPEECH DISORDER [None]
  - STAPHYLOCOCCAL INFECTION [None]
  - URINARY TRACT INFECTION [None]
